FAERS Safety Report 14236078 (Version 2)
Quarter: 2018Q3

REPORT INFORMATION
  Report Type: Spontaneous
  Country: FR (occurrence: FR)
  Receive Date: 20171129
  Receipt Date: 20180831
  Transmission Date: 20181010
  Serious: Yes (Hospitalization)
  Sender: FDA-Public Use
  Company Number: FR-ROCHE-2027709

PATIENT
  Age: 71 Year
  Sex: Male
  Weight: 61 kg

DRUGS (2)
  1. COTELLIC [Suspect]
     Active Substance: COBIMETINIB
     Indication: MALIGNANT MELANOMA STAGE IV
     Route: 048
     Dates: start: 201612, end: 201707
  2. ZELBORAF [Suspect]
     Active Substance: VEMURAFENIB
     Indication: MALIGNANT MELANOMA STAGE IV
     Route: 048
     Dates: start: 201612, end: 201707

REACTIONS (1)
  - Polyneuropathy [Recovered/Resolved with Sequelae]

NARRATIVE: CASE EVENT DATE: 201707
